FAERS Safety Report 25832050 (Version 2)
Quarter: 2025Q4

REPORT INFORMATION
  Report Type: Spontaneous
  Country: IN (occurrence: IN)
  Receive Date: 20250922
  Receipt Date: 20251006
  Transmission Date: 20260118
  Serious: Yes (Other)
  Sender: ASTELLAS
  Company Number: IN-ASTELLAS-2025-AER-052233

PATIENT
  Age: 51 Year
  Sex: Male
  Weight: 68 kg

DRUGS (12)
  1. CRESEMBA [Suspect]
     Active Substance: ISAVUCONAZONIUM SULFATE
     Indication: Product used for unknown indication
     Dosage: CAPSULE, HARD
     Route: 048
     Dates: start: 20250825
  2. BILASURE M [Concomitant]
     Indication: Product used for unknown indication
     Route: 065
  3. BIO D3 PLUS [Concomitant]
     Indication: Product used for unknown indication
     Route: 065
  4. ASPIRIN\ATORVASTATIN [Concomitant]
     Active Substance: ASPIRIN\ATORVASTATIN
     Indication: Product used for unknown indication
     Route: 065
  5. ERASAVIR [Concomitant]
     Indication: Product used for unknown indication
     Route: 065
  6. FLUDROCORTISONE [Concomitant]
     Active Substance: FLUDROCORTISONE
     Indication: Product used for unknown indication
     Route: 065
  7. GANATON TOTAL [Concomitant]
     Indication: Product used for unknown indication
     Route: 065
  8. HYDROCORTISONE [Concomitant]
     Active Substance: HYDROCORTISONE
     Indication: Product used for unknown indication
     Route: 065
  9. REJUNEX CD3 [Concomitant]
     Indication: Product used for unknown indication
     Route: 065
  10. LINAGLIPTIN\METFORMIN HYDROCHLORIDE [Concomitant]
     Active Substance: LINAGLIPTIN\METFORMIN HYDROCHLORIDE
     Indication: Product used for unknown indication
     Route: 065
  11. CHOLECALCIFEROL [Concomitant]
     Active Substance: CHOLECALCIFEROL
     Indication: Product used for unknown indication
     Route: 065
  12. ASCORIL D [DEXTROMETHORPHAN HYDROBROMIDE] [Concomitant]
     Indication: Product used for unknown indication
     Route: 065

REACTIONS (6)
  - Blood corticotrophin increased [Unknown]
  - Histoplasmosis [Unknown]
  - White blood cell count increased [Unknown]
  - Haemoglobin decreased [Unknown]
  - Blood glucose increased [Unknown]
  - Off label use [Unknown]

NARRATIVE: CASE EVENT DATE: 20250101
